FAERS Safety Report 10759902 (Version 1)
Quarter: 2015Q1

REPORT INFORMATION
  Report Type: Report from Study
  Country: BR (occurrence: BR)
  Receive Date: 20150203
  Receipt Date: 20150203
  Transmission Date: 20150721
  Serious: Yes (Death, Other)
  Sender: FDA-Public Use
  Company Number: PHHY2015BR013159

PATIENT
  Sex: Male
  Weight: 45 kg

DRUGS (1)
  1. EXELON PATCH [Suspect]
     Active Substance: RIVASTIGMINE
     Indication: DEMENTIA ALZHEIMER^S TYPE
     Dosage: 13.3 MG, QD
     Route: 062

REACTIONS (3)
  - Septic shock [Fatal]
  - Pneumonia aspiration [Fatal]
  - Dementia Alzheimer^s type [Fatal]
